FAERS Safety Report 9177521 (Version 2)
Quarter: 2013Q1

REPORT INFORMATION
  Report Type: Report from Study
  Country: TR (occurrence: TR)
  Receive Date: 20130321
  Receipt Date: 20130322
  Transmission Date: 20140127
  Serious: Yes (Hospitalization)
  Sender: FDA-Public Use
  Company Number: PHHY2013TR026215

PATIENT
  Age: 14 Year
  Sex: Male
  Weight: 30 kg

DRUGS (3)
  1. ICL670A [Suspect]
     Indication: IRON OVERLOAD
     Dosage: 33 MG/KG, DAILY
     Route: 048
     Dates: start: 20080701
  2. LEVEMIR [Concomitant]
     Indication: TYPE 1 DIABETES MELLITUS
     Dosage: 2 U, UNK
     Dates: start: 20121004
  3. NOVORAPID [Concomitant]
     Indication: TYPE 1 DIABETES MELLITUS
     Dosage: 4 U, UNK
     Dates: start: 20121004

REACTIONS (1)
  - Urinary tract infection [Recovered/Resolved]
